FAERS Safety Report 20635926 (Version 2)
Quarter: 2024Q3

REPORT INFORMATION
  Report Type: Report from Study
  Country: FR (occurrence: FR)
  Receive Date: 20220325
  Receipt Date: 20240716
  Transmission Date: 20241016
  Serious: Yes (Hospitalization)
  Sender: TAKEDA
  Company Number: FR-SA-SAC20220214000599

PATIENT
  Age: 72 Year
  Sex: Male
  Weight: 82 kg

DRUGS (12)
  1. BORTEZOMIB [Suspect]
     Active Substance: BORTEZOMIB
     Indication: Plasma cell myeloma
     Dosage: 2.5 MILLIGRAM, Q8HR
     Route: 065
     Dates: start: 20211123, end: 20220102
  2. BORTEZOMIB [Suspect]
     Active Substance: BORTEZOMIB
     Dosage: 1.3 MILLIGRAM/SQ. METER, 1/WEEK
     Route: 065
     Dates: start: 20211123, end: 20211123
  3. BORTEZOMIB [Suspect]
     Active Substance: BORTEZOMIB
     Dosage: UNK
     Route: 065
     Dates: start: 20220201, end: 20220201
  4. BORTEZOMIB [Suspect]
     Active Substance: BORTEZOMIB
     Dosage: 2 MILLIGRAM
     Route: 065
     Dates: start: 20220222
  5. ISATUXIMAB [Suspect]
     Active Substance: ISATUXIMAB
     Indication: Plasma cell myeloma
     Dosage: 820 MILLIGRAM, Q8HR
     Route: 065
     Dates: start: 20211123, end: 20220102
  6. ISATUXIMAB [Suspect]
     Active Substance: ISATUXIMAB
     Dosage: 10 MILLIGRAM/KILOGRAM, QD
     Route: 065
     Dates: start: 20211123, end: 20211123
  7. ISATUXIMAB [Suspect]
     Active Substance: ISATUXIMAB
     Dosage: UNK
     Route: 065
     Dates: start: 20220201, end: 20220201
  8. LENALIDOMIDE [Suspect]
     Active Substance: LENALIDOMIDE
     Indication: Product used for unknown indication
     Dosage: 5 MILLIGRAM, Q8HR
     Route: 065
     Dates: start: 20220222
  9. LENALIDOMIDE [Suspect]
     Active Substance: LENALIDOMIDE
     Dosage: 10 MILLIGRAM, Q8HR
     Route: 065
     Dates: start: 20211123, end: 20220102
  10. LENALIDOMIDE [Suspect]
     Active Substance: LENALIDOMIDE
     Dosage: UNK
     Route: 065
     Dates: start: 20220201, end: 20220201
  11. LENALIDOMIDE [Suspect]
     Active Substance: LENALIDOMIDE
     Dosage: 25 MILLIGRAM, QD
     Route: 048
     Dates: start: 20211123, end: 20211123
  12. DEXAMETHASONE [Concomitant]
     Active Substance: DEXAMETHASONE
     Dosage: 20 MILLIGRAM, Q8HR
     Route: 065
     Dates: start: 20211123, end: 20220209

REACTIONS (2)
  - General physical health deterioration [Recovering/Resolving]
  - Renal disorder [Recovered/Resolved with Sequelae]

NARRATIVE: CASE EVENT DATE: 20220201
